FAERS Safety Report 25458754 (Version 2)
Quarter: 2025Q2

REPORT INFORMATION
  Report Type: Spontaneous
  Country: US (occurrence: US)
  Receive Date: 20250620
  Receipt Date: 20250627
  Transmission Date: 20250717
  Serious: No
  Sender: Haleon PLC
  Company Number: US-HALEON-2247924

PATIENT
  Sex: Female
  Weight: 99.79 kg

DRUGS (3)
  1. ALLI [Suspect]
     Active Substance: ORLISTAT
     Indication: Weight decreased
  2. ALLI [Suspect]
     Active Substance: ORLISTAT
  3. ALLI [Suspect]
     Active Substance: ORLISTAT

REACTIONS (2)
  - Drug ineffective [Unknown]
  - Suspected counterfeit product [Unknown]
